FAERS Safety Report 5051289-X (Version None)
Quarter: 2006Q3

REPORT INFORMATION
  Report Type: 
  Country: None (occurrence: None)
  Receive Date: 20060710
  Receipt Date: 20060626
  Transmission Date: 20061208
  Serious: Yes (Life-Threatening, Hospitalization, Other)
  Sender: FDA-Public Use
  Company Number: HQWYE554305MAY05

PATIENT
  Age: 47 Year
  Sex: Male

DRUGS (12)
  1. PANTOPRAZOLE SODIUM [Suspect]
  2. AMISULPRIDE [Suspect]
     Dosage: SOME TIME(S) SOME DF^ ORAL
     Route: 048
  3. ATENOLOL [Suspect]
     Dosage: ^SOME TIME(S) SOME DF^ ORAL
     Route: 048
  4. DOXAZOSIN MESYLATE [Suspect]
     Dosage: ^SOME TIME(S) SOME DF^ ORAL
     Route: 048
  5. FENTANYL [Suspect]
     Dosage: ^SOME TIME(S) SOME DF^ INTRAVENOUS
     Route: 042
  6. FENTANYL [Suspect]
     Dosage: ^DF^ TOPICAL
     Route: 061
  7. HALOPERIDOL [Suspect]
  8. OMEPRAZOLE [Suspect]
  9. PROCYCLIDINE HYDROCHLORIDE 2MG TAB [Suspect]
     Dosage: ^SOME TIME(S) SOME DF^ ORAL
     Route: 048
  10. RIFAMPICIN [Suspect]
     Dosage: ^SOME TIME(S) SOME DF^ INTRAVENOUS
     Route: 042
  11. ZOPICLONE [Suspect]
  12. ZYVOX [Suspect]
     Indication: STAPHYLOCOCCAL INFECTION
     Dosage: 600 MG 2X PER 1 DAY INTRAVENOUS
     Route: 042
     Dates: start: 20041017, end: 20041020

REACTIONS (2)
  - BLOOD PRESSURE SYSTOLIC INCREASED [None]
  - DRUG INTERACTION [None]
